FAERS Safety Report 6874218-2 (Version None)
Quarter: 2010Q3

REPORT INFORMATION
  Report Type: 
  Country: None (occurrence: None)
  Receive Date: 20100723
  Receipt Date: 20090616
  Transmission Date: 20110219
  Serious: No
  Sender: FDA-Public Use
  Company Number: US-PFIZER INC-2009191741

PATIENT
  Sex: Female
  Weight: 77.11 kg

DRUGS (6)
  1. CHANTIX [Suspect]
     Indication: SMOKING CESSATION THERAPY
     Dosage: 1 MG, 2X/DAY
  2. LIPITOR [Concomitant]
     Dosage: UNK
  3. MONTELUKAST [Concomitant]
     Dosage: UNK
  4. PREMARIN [Concomitant]
     Dosage: UNK
  5. LEXAPRO [Concomitant]
     Dosage: UNK
  6. NASONEX [Concomitant]
     Dosage: UNK

REACTIONS (3)
  - INFLUENZA [None]
  - NAUSEA [None]
  - SINUSITIS [None]
